FAERS Safety Report 14965251 (Version 5)
Quarter: 2019Q1

REPORT INFORMATION
  Report Type: Spontaneous
  Country: ES (occurrence: ES)
  Receive Date: 20180601
  Receipt Date: 20190128
  Transmission Date: 20190417
  Serious: Yes (Hospitalization)
  Sender: FDA-Public Use
  Company Number: PHHY2018ES009219

PATIENT
  Age: 5 Year
  Sex: Female

DRUGS (4)
  1. IBUPROFEN. [Suspect]
     Active Substance: IBUPROFEN
     Indication: PYREXIA
     Dosage: UNK
     Route: 065
     Dates: start: 20150407, end: 20150413
  2. IBUPROFEN. [Suspect]
     Active Substance: IBUPROFEN
     Indication: TONSILLITIS STREPTOCOCCAL
  3. PENILEVEL (BENZYLPENICILLIN SODIUM) [Suspect]
     Active Substance: PENICILLIN G SODIUM
     Indication: PHARYNGOTONSILLITIS
     Dosage: 250 MG, UNK
     Route: 048
     Dates: start: 20150407, end: 20150413
  4. PARACETAMOL [Suspect]
     Active Substance: ACETAMINOPHEN
     Indication: PYREXIA
     Dosage: UNK
     Route: 065
     Dates: start: 201504, end: 201505

REACTIONS (16)
  - Disease progression [None]
  - Hypopyon [Recovering/Resolving]
  - Lip swelling [Unknown]
  - Drug ineffective [Unknown]
  - Eyelid oedema [Unknown]
  - Rash maculo-papular [Unknown]
  - Ulcerative keratitis [Unknown]
  - Fusarium infection [Unknown]
  - Toxic epidermal necrolysis [Recovered/Resolved with Sequelae]
  - Corneal disorder [Recovered/Resolved with Sequelae]
  - Open globe injury [Unknown]
  - Ectropion [Unknown]
  - Therapy cessation [None]
  - Eye disorder [Unknown]
  - Stevens-Johnson syndrome [Unknown]
  - Dry eye [Unknown]

NARRATIVE: CASE EVENT DATE: 20150502
